FAERS Safety Report 8087603-0 (Version None)
Quarter: 2012Q1

REPORT INFORMATION
  Report Type: 
  Country: None (occurrence: None)
  Receive Date: 20120128
  Receipt Date: 20110525
  Transmission Date: 20120608
  Serious: No
  Sender: FDA-Public Use
  Company Number: US-ABBOTT-11P-163-0728474-00

PATIENT
  Age: 49 Year
  Sex: Female

DRUGS (10)
  1. FERROUS SULFATE TAB [Concomitant]
     Indication: PRODUCT USED FOR UNKNOWN INDICATION
  2. SEROQUEL [Concomitant]
     Indication: PRODUCT USED FOR UNKNOWN INDICATION
  3. AMBIEN CR [Concomitant]
     Indication: PRODUCT USED FOR UNKNOWN INDICATION
     Dosage: AT BEDTIME, DAILY
  4. GABAPENTIN [Concomitant]
     Indication: PRODUCT USED FOR UNKNOWN INDICATION
  5. METRONIDAZOLE [Concomitant]
     Indication: PRODUCT USED FOR UNKNOWN INDICATION
     Dosage: 1/2, 3 TIMES DAILY
  6. HUMIRA [Suspect]
     Indication: CROHN'S DISEASE
     Dates: start: 20110401
  7. SIMVASTATIN [Concomitant]
     Indication: PRODUCT USED FOR UNKNOWN INDICATION
     Dosage: AT BEDTIME, DAILY
  8. NAPROXIN [Concomitant]
     Indication: PRODUCT USED FOR UNKNOWN INDICATION
     Dosage: EVERY 12 HOURS, AS NEEDED
  9. PLAQUENIL [Concomitant]
     Indication: PRODUCT USED FOR UNKNOWN INDICATION
  10. METHOTREXATE [Concomitant]
     Indication: PRODUCT USED FOR UNKNOWN INDICATION

REACTIONS (3)
  - INCORRECT DOSE ADMINISTERED [None]
  - INCORRECT ROUTE OF DRUG ADMINISTRATION [None]
  - WRONG TECHNIQUE IN DRUG USAGE PROCESS [None]
